FAERS Safety Report 8294263-2 (Version None)
Quarter: 2012Q2

REPORT INFORMATION
  Report Type: 
  Country: None (occurrence: None)
  Receive Date: 20120418
  Receipt Date: 20120411
  Transmission Date: 20120825
  Serious: Yes (Congenital Anomaly, Other)
  Sender: FDA-Public Use
  Company Number: US-PFIZER INC-2012007401

PATIENT
  Sex: Female
  Weight: 3.7 kg

DRUGS (3)
  1. ZOLOFT [Suspect]
     Indication: DEPRESSION
     Dosage: 50 MG, UNK
     Route: 064
     Dates: start: 19960101
  2. ZOLOFT [Suspect]
     Dosage: UNK
     Route: 064
     Dates: end: 19980101
  3. METRONIDAZOLE [Concomitant]
     Indication: VAGINITIS BACTERIAL
     Dosage: UNK
     Route: 064

REACTIONS (2)
  - MENINGOMYELOCELE [None]
  - MATERNAL EXPOSURE TIMING UNSPECIFIED [None]
